FAERS Safety Report 24366818 (Version 1)
Quarter: 2024Q3

REPORT INFORMATION
  Report Type: Spontaneous
  Country: JP (occurrence: JP)
  Receive Date: 20240926
  Receipt Date: 20240926
  Transmission Date: 20241016
  Serious: Yes (Other)
  Sender: TEVA
  Company Number: JP-TEVA-VS-3238917

PATIENT
  Age: 72 Year
  Sex: Female

DRUGS (1)
  1. AZILECT [Suspect]
     Active Substance: RASAGILINE MESYLATE
     Indication: Parkinson^s disease
     Route: 048

REACTIONS (14)
  - Posture abnormal [Unknown]
  - Hyperventilation [Unknown]
  - Camptocormia [Unknown]
  - Cardiac disorder [Unknown]
  - Body height decreased [Unknown]
  - Anxiety disorder [Unknown]
  - Osteoarthritis [Unknown]
  - Pain [Unknown]
  - Cognitive disorder [Unknown]
  - Abdominal discomfort [Unknown]
  - Intentional dose omission [Unknown]
  - Decreased appetite [Unknown]
  - Abdominal pain upper [Unknown]
  - Back pain [Unknown]
